FAERS Safety Report 8396559-2 (Version None)
Quarter: 2012Q2

REPORT INFORMATION
  Report Type: 
  Country: None (occurrence: None)
  Receive Date: 20120530
  Receipt Date: 20120521
  Transmission Date: 20120825
  Serious: Yes (Other)
  Sender: FDA-Public Use
  Company Number: US-BRISTOL-MYERS SQUIBB COMPANY-16574907

PATIENT
  Age: 68 Year
  Sex: Male
  Weight: 85 kg

DRUGS (16)
  1. ZOFRAN [Concomitant]
  2. AUGMENTIN [Concomitant]
  3. DURAGESIC-100 [Concomitant]
  4. OMEPRAZOLE [Concomitant]
     Indication: GASTROOESOPHAGEAL REFLUX DISEASE
     Dosage: 1 CAPS
  5. ERBITUX [Suspect]
     Indication: HEAD AND NECK CANCER
     Dosage: RESTARTED:MAR2012, DOSE:1000 MG
     Route: 042
     Dates: start: 20110701
  6. HYDROCODONE BITARTRATE [Concomitant]
     Indication: PAIN
     Dosage: 1DF=5/325,10MG/325 TABS 1 OR 2 EVERY 4-6 HRS
  7. FENTANYL-100 [Concomitant]
     Indication: PAIN
  8. TAXOL [Suspect]
     Indication: HEAD AND NECK CANCER
     Dosage: DOSE:161 MG
  9. ONDANSETRON [Concomitant]
     Indication: NAUSEA
     Dosage: 1 EVERY 8 HRS
  10. DICYCLOMINE [Concomitant]
     Dosage: AS NEEDED, DICLOMINE 10MG/5ML
  11. NYSTATIN ORAL SUSPENSION [Concomitant]
     Indication: FUNGAL INFECTION
     Dosage: SWISH AND SPIT 1 TSP BY MOUTH 4TIMES DAILY
  12. SYNTHROID [Concomitant]
  13. MAGIC MOUTHWASH [Concomitant]
  14. LEVOTHYROXINE SODIUM [Concomitant]
     Indication: THYROID DISORDER
     Dosage: 1 TABS
  15. LIDOCAINE [Concomitant]
     Indication: PAIN
     Dosage: SWISH 1 TO 2 TEASPOONS TWICE DAILY  AS NEEDED
  16. MULTI-VITAMINS [Concomitant]

REACTIONS (6)
  - DYSPHAGIA [None]
  - RASH [None]
  - DIARRHOEA [None]
  - WEIGHT DECREASED [None]
  - ALOPECIA [None]
  - ABDOMINAL PAIN UPPER [None]
